FAERS Safety Report 23644325 (Version 1)
Quarter: 2024Q1

REPORT INFORMATION
  Report Type: Report from Study
  Country: US (occurrence: US)
  Receive Date: 20240318
  Receipt Date: 20240318
  Transmission Date: 20240410
  Serious: Yes (Other)
  Sender: FDA-Public Use
  Company Number: US-GILEAD-2024-0666007

PATIENT
  Sex: Female

DRUGS (1)
  1. AZTREONAM LYSINE [Suspect]
     Active Substance: AZTREONAM LYSINE
     Indication: Cystic fibrosis
     Dosage: 45MG/ML. INHALE 1 ML (75 MG) VIA ALTERA NEBULIZER AS INSTRUCTED THREE TIMES DAILY, EVERY OTHER MONTH
     Route: 055

REACTIONS (1)
  - Pneumonia [Unknown]
